FAERS Safety Report 5146554-1 (Version None)
Quarter: 2006Q4

REPORT INFORMATION
  Report Type: 
  Country: None (occurrence: None)
  Receive Date: 20061107
  Receipt Date: 20061107
  Transmission Date: 20070319
  Serious: No
  Sender: FDA-Public Use
  Company Number: None

PATIENT
  Age: 74 Year

DRUGS (2)
  1. CARBOPLATIN [Suspect]
     Indication: SMALL CELL LUNG CANCER EXTENSIVE STAGE
  2. IRINOTECAN HCL [Suspect]
     Indication: SMALL CELL LUNG CANCER EXTENSIVE STAGE

REACTIONS (3)
  - FEBRILE NEUTROPENIA [None]
  - HYPOMAGNESAEMIA [None]
  - INFECTION [None]
